FAERS Safety Report 7565367-4 (Version None)
Quarter: 2011Q2

REPORT INFORMATION
  Report Type: 
  Country: None (occurrence: None)
  Receive Date: 20110623
  Receipt Date: 20110617
  Transmission Date: 20111010
  Serious: No
  Sender: FDA-Public Use
  Company Number: US-BIOGENIDEC-2010BI044207

PATIENT
  Age: 49 Year
  Sex: Female

DRUGS (1)
  1. TYSABRI [Suspect]
     Indication: MULTIPLE SCLEROSIS
     Route: 042
     Dates: start: 20100414

REACTIONS (7)
  - BALANCE DISORDER [None]
  - DIZZINESS [None]
  - PERONEAL NERVE PALSY [None]
  - INFUSION SITE HAEMATOMA [None]
  - MUSCULAR WEAKNESS [None]
  - STRESS [None]
  - HYPOAESTHESIA [None]
